FAERS Safety Report 16238782 (Version 1)
Quarter: 2019Q2

REPORT INFORMATION
  Report Type: Spontaneous
  Country: US (occurrence: US)
  Receive Date: 20190321
  Receipt Date: 20190321
  Transmission Date: 20190713
  Serious: No
  Sender: FDA-Public Use
  Company Number: None

PATIENT
  Age: 28 Year
  Sex: Female

DRUGS (1)
  1. HUMIRA [Suspect]
     Active Substance: ADALIMUMAB
     Indication: RHEUMATOID ARTHRITIS
     Dosage: ?          OTHER FREQUENCY:EVERY 14 AYS;?
     Route: 058
     Dates: start: 20190226

REACTIONS (3)
  - Device malfunction [None]
  - Condition aggravated [None]
  - Drug dose omission by device [None]

NARRATIVE: CASE EVENT DATE: 20190320
